FAERS Safety Report 7358762-X (Version None)
Quarter: 2011Q1

REPORT INFORMATION
  Report Type: 
  Country: None (occurrence: None)
  Receive Date: 20110317
  Receipt Date: 20110309
  Transmission Date: 20110831
  Serious: Yes (Hospitalization)
  Sender: FDA-Public Use
  Company Number: A0917364A

PATIENT
  Age: 58 Year
  Sex: Female

DRUGS (13)
  1. DIAVAN [Concomitant]
  2. DIOVAN HCT [Concomitant]
  3. ASPIRIN [Concomitant]
  4. AVANDAMET [Suspect]
     Dosage: 1TAB TWICE PER DAY
     Route: 048
     Dates: start: 20080101, end: 20110214
  5. CELEBREX [Concomitant]
  6. BYSTOLIC [Concomitant]
  7. GLYBURIDE [Concomitant]
  8. UNKNOWN [Concomitant]
  9. AMLODIPINE [Concomitant]
  10. AVANDIA [Suspect]
     Route: 048
     Dates: start: 20040101, end: 20080101
  11. HYDROCODONE BITARTRATE [Concomitant]
  12. LYRICA [Concomitant]
  13. SIMVASTATIN [Concomitant]

REACTIONS (9)
  - CEREBROVASCULAR ACCIDENT [None]
  - INSOMNIA [None]
  - VISION BLURRED [None]
  - ABDOMINAL DISTENSION [None]
  - MUSCLE SPASMS [None]
  - FIBROMYALGIA [None]
  - HYPERTENSION [None]
  - GAIT DISTURBANCE [None]
  - PAIN [None]
